FAERS Safety Report 9814161 (Version 1)
Quarter: 2014Q1

REPORT INFORMATION
  Report Type: Spontaneous
  Country: US (occurrence: US)
  Receive Date: 20140113
  Receipt Date: 20140113
  Transmission Date: 20141002
  Serious: No
  Sender: FDA-Public Use
  Company Number: US-ASTELLAS-2013US012656

PATIENT
  Age: 75 Year
  Sex: Male

DRUGS (1)
  1. MYRBETRIQ [Suspect]
     Indication: BLADDER DISCOMFORT
     Dosage: 25 MG, DAILY
     Route: 048
     Dates: start: 201311

REACTIONS (1)
  - Drug ineffective [Unknown]
